FAERS Safety Report 23684910 (Version 1)
Quarter: 2024Q1

REPORT INFORMATION
  Report Type: Spontaneous
  Country: IT (occurrence: IT)
  Receive Date: 20240328
  Receipt Date: 20240328
  Transmission Date: 20240409
  Serious: Yes (Hospitalization)
  Sender: FDA-Public Use
  Company Number: None

PATIENT
  Age: 78 Year
  Sex: Female

DRUGS (6)
  1. XARELTO [Suspect]
     Active Substance: RIVAROXABAN
     Indication: Atrial fibrillation
     Route: 048
     Dates: start: 2018
  2. DICLOFENAC SODIUM\MISOPROSTOL [Suspect]
     Active Substance: DICLOFENAC SODIUM\MISOPROSTOL
     Indication: Pain
     Dosage: UNK
     Route: 048
     Dates: start: 20230217, end: 20230303
  3. LASIX [Concomitant]
     Active Substance: FUROSEMIDE
     Indication: Oedema
     Dosage: LASIX 25 MG 2CP/DIE
     Route: 048
  4. CANDESARTAN [Concomitant]
     Active Substance: CANDESARTAN
     Route: 048
  5. LERCANIDIPINA [LERCANIDIPINE] [Concomitant]
  6. BISOPROLOL FUMARATE [Concomitant]
     Active Substance: BISOPROLOL FUMARATE
     Dosage: UNK
     Route: 048

REACTIONS (3)
  - Melaena [Recovered/Resolved]
  - Dyspnoea [Recovered/Resolved]
  - Anaemia [Recovered/Resolved]

NARRATIVE: CASE EVENT DATE: 20230301
